FAERS Safety Report 4826814-1 (Version None)
Quarter: 2005Q4

REPORT INFORMATION
  Report Type: 
  Country: None (occurrence: None)
  Receive Date: 20051014
  Receipt Date: 20050622
  Transmission Date: 20060501
  Serious: No
  Sender: FDA-Public Use
  Company Number: 2005SP001556

PATIENT
  Age: 81 Year
  Sex: Female
  Weight: 53.978 kg

DRUGS (3)
  1. LUNESTA [Suspect]
     Indication: INSOMNIA
     Dosage: 2 MG;HS;ORAL
     Route: 048
     Dates: start: 20050605, end: 20050601
  2. PROSOM [Concomitant]
  3. AMLODIPINE BESYLATE [Concomitant]

REACTIONS (4)
  - DRUG INEFFECTIVE [None]
  - HEADACHE [None]
  - MIDDLE INSOMNIA [None]
  - NERVOUSNESS [None]
